FAERS Safety Report 9577913 (Version 1)
Quarter: 2013Q4

REPORT INFORMATION
  Report Type: Spontaneous
  Country: US (occurrence: US)
  Receive Date: 20131001
  Receipt Date: 20131001
  Transmission Date: 20140711
  Serious: No
  Sender: FDA-Public Use
  Company Number: US-AMGEN-USASP2013010437

PATIENT
  Age: 63 Year
  Sex: Female
  Weight: 73.92 kg

DRUGS (6)
  1. ENBREL [Suspect]
     Indication: PRODUCT USED FOR UNKNOWN INDICATION
     Dosage: 25 MG, 2 TIMES/WK
     Route: 058
  2. MULTICAPS [Concomitant]
     Dosage: UNK
  3. VITAMIN D                          /00107901/ [Concomitant]
     Dosage: 400 UNIT, UNK
  4. ASA [Concomitant]
     Dosage: 81 MG, UNK
  5. PROZAC [Concomitant]
     Dosage: 10 MG, UNK
  6. METHOTREXATE [Concomitant]
     Dosage: 2.5 MG, UNK

REACTIONS (1)
  - Injection site pain [Recovered/Resolved]
